FAERS Safety Report 9318725 (Version 2)
Quarter: 2013Q2

REPORT INFORMATION
  Report Type: Spontaneous
  Country: US (occurrence: US)
  Receive Date: 20130530
  Receipt Date: 20130628
  Transmission Date: 20140414
  Serious: Yes (Hospitalization, Other)
  Sender: FDA-Public Use
  Company Number: US-PFIZER INC-2013161025

PATIENT
  Age: 64 Year
  Sex: Female
  Weight: 96 kg

DRUGS (5)
  1. GLUCOTROL [Suspect]
     Indication: DIABETES MELLITUS
     Dosage: 20 MG (2 TABLETS 10MG), 2X/DAY
     Route: 048
     Dates: start: 2010
  2. SYNTHROID [Concomitant]
     Dosage: UNK
  3. CYMBALTA [Concomitant]
     Dosage: UNK
  4. XANAX [Concomitant]
     Dosage: UNK
  5. VICODIN [Concomitant]
     Dosage: UNK

REACTIONS (4)
  - Chronic inflammatory demyelinating polyradiculoneuropathy [Not Recovered/Not Resolved]
  - Loss of consciousness [Unknown]
  - Fall [Recovered/Resolved]
  - Oxygen saturation decreased [Unknown]
